FAERS Safety Report 23895060 (Version 1)
Quarter: 2024Q2

REPORT INFORMATION
  Report Type: Spontaneous
  Country: US (occurrence: US)
  Receive Date: 20240524
  Receipt Date: 20240524
  Transmission Date: 20240715
  Serious: Yes (Other)
  Sender: FDA-Public Use
  Company Number: US-GLANDPHARMA-US-2024GLNSPO00159

PATIENT
  Sex: Female

DRUGS (1)
  1. AZITHROMYCIN [Suspect]
     Active Substance: AZITHROMYCIN
     Indication: Lyme disease
     Route: 065

REACTIONS (1)
  - Cholecystectomy [Unknown]
